FAERS Safety Report 9209649 (Version 1)
Quarter: 2013Q2

REPORT INFORMATION
  Report Type: Spontaneous
  Country: US (occurrence: None)
  Receive Date: 20130403
  Receipt Date: 20130403
  Transmission Date: 20140414
  Serious: Yes (Life-Threatening)
  Sender: FDA-Public Use
  Company Number: None

PATIENT
  Sex: Female
  Weight: 77.11 kg

DRUGS (1)
  1. TRIAMTERENE HCTZ [Suspect]
     Dosage: 5 MG/25MG ONCE DAILY MOUTH ?2 TO 3 WEEKS

REACTIONS (3)
  - Loss of consciousness [None]
  - Sensory disturbance [None]
  - Product substitution issue [None]
